FAERS Safety Report 22206638 (Version 1)
Quarter: 2023Q2

REPORT INFORMATION
  Report Type: Spontaneous
  Country: US (occurrence: None)
  Receive Date: 20230412
  Receipt Date: 20230412
  Transmission Date: 20230722
  Serious: Yes (Life-Threatening, Hospitalization)
  Sender: FDA-Public Use
  Company Number: None

PATIENT
  Age: 39 Year
  Sex: Female
  Weight: 63 kg

DRUGS (4)
  1. SPIRONOLACTONE [Suspect]
     Active Substance: SPIRONOLACTONE
     Indication: Acne
     Route: 048
     Dates: start: 20221031, end: 20230321
  2. SPIRONOLACTONE [Suspect]
     Active Substance: SPIRONOLACTONE
     Indication: Off label use
  3. famotidine 20 mg BID [Concomitant]
  4. Nexium 20 mg QD [Concomitant]

REACTIONS (11)
  - Hypoaesthesia [None]
  - Hypoaesthesia [None]
  - Asthenia [None]
  - Tremor [None]
  - Sleep terror [None]
  - Myoclonus [None]
  - Hyperhidrosis [None]
  - Confusional state [None]
  - Hypopnoea [None]
  - Dysphagia [None]
  - Dyspepsia [None]

NARRATIVE: CASE EVENT DATE: 20230222
